FAERS Safety Report 7793237-5 (Version None)
Quarter: 2011Q4

REPORT INFORMATION
  Report Type: 
  Country: None (occurrence: None)
  Receive Date: 20111003
  Receipt Date: 20110927
  Transmission Date: 20120403
  Serious: Yes (Hospitalization)
  Sender: FDA-Public Use
  Company Number: JP-EISAI INC-E2090-01717-SPO-JP

PATIENT
  Sex: Male

DRUGS (7)
  1. ONON [Suspect]
     Dosage: 50 MG
     Route: 048
     Dates: start: 20110201, end: 20110715
  2. CLONAZEPAM [Concomitant]
  3. TOPIRAMATE [Suspect]
     Dosage: 75 MG
     Route: 048
     Dates: start: 20110627, end: 20110715
  4. ZONISAMIDE [Suspect]
     Route: 048
     Dates: start: 20110713, end: 20110714
  5. ZONISAMIDE [Suspect]
     Route: 048
     Dates: start: 20110701, end: 20110701
  6. ZONISAMIDE [Suspect]
     Dosage: DOSE UNSPECIFIED- INCREASED GRADUALLY
     Route: 048
     Dates: start: 20110701, end: 20110712
  7. ACETAMINOPHEN [Concomitant]

REACTIONS (1)
  - RHABDOMYOLYSIS [None]
